FAERS Safety Report 4304128-6 (Version None)
Quarter: 2004Q1

REPORT INFORMATION
  Report Type: 
  Country: None (occurrence: None)
  Receive Date: 20040225
  Receipt Date: 20040212
  Transmission Date: 20041129
  Serious: Yes (Disabling)
  Sender: FDA-Public Use
  Company Number: 200102-1315

PATIENT
  Age: 79 Year
  Sex: Female

DRUGS (3)
  1. SUDAFED COLD + ALLERGY (PSEUDOEPHEDRINE, CHLORPHENIRAMINE) [Suspect]
     Indication: NASAL CONGESTION
     Dosage: 1 TAB EVERY 6 HOURS, ORAL
     Route: 048
     Dates: start: 20010215, end: 20010222
  2. ATENOLOL [Concomitant]
  3. ENALAPRIL MALEATE [Concomitant]

REACTIONS (3)
  - BLINDNESS UNILATERAL [None]
  - RETINAL VEIN OCCLUSION [None]
  - VISION BLURRED [None]
